FAERS Safety Report 5602241-4 (Version None)
Quarter: 2008Q1

REPORT INFORMATION
  Report Type: 
  Country: None (occurrence: None)
  Receive Date: 20080125
  Receipt Date: 20080115
  Transmission Date: 20080703
  Serious: Yes (Hospitalization)
  Sender: FDA-Public Use
  Company Number: US-ASTRAZENECA-2006UW25062

PATIENT
  Age: 9525 Day
  Sex: Female
  Weight: 111.4 kg

DRUGS (6)
  1. SEROQUEL [Suspect]
     Indication: INSOMNIA
     Route: 048
     Dates: start: 20040901, end: 20060503
  2. SEROQUEL [Suspect]
     Indication: BIPOLAR DISORDER
     Route: 048
     Dates: start: 20040901, end: 20060503
  3. ABILIFY [Concomitant]
     Dosage: 2.5 - 50 MG
     Dates: start: 20070104, end: 20070401
  4. GEODON [Concomitant]
     Dates: start: 20021107, end: 20050302
  5. HALDOL [Concomitant]
     Dosage: 4 - 5 MG
     Dates: start: 20030818, end: 20040121
  6. RISPERDAL [Concomitant]
     Dates: start: 20021107, end: 20040428

REACTIONS (3)
  - CATHETERISATION CARDIAC [None]
  - DIABETES MELLITUS [None]
  - RESTLESS LEGS SYNDROME [None]
